FAERS Safety Report 20825184 (Version 2)
Quarter: 2022Q4

REPORT INFORMATION
  Report Type: Report from Study
  Country: US (occurrence: US)
  Receive Date: 20220513
  Receipt Date: 20221214
  Transmission Date: 20230113
  Serious: Yes (Death, Hospitalization, Other)
  Sender: FDA-Public Use
  Company Number: US-ABBVIE-22K-163-4392416-00

PATIENT
  Age: 60 Year
  Sex: Female
  Weight: 94.8 kg

DRUGS (8)
  1. IMBRUVICA [Suspect]
     Active Substance: IBRUTINIB
     Indication: Bronchial carcinoma
     Route: 048
  2. IMBRUVICA [Suspect]
     Active Substance: IBRUTINIB
     Indication: Bronchial carcinoma
     Route: 048
     Dates: start: 201908
  3. IMBRUVICA [Suspect]
     Active Substance: IBRUTINIB
     Indication: Bronchial carcinoma
     Route: 048
  4. METOPROLOL [Concomitant]
     Active Substance: METOPROLOL
     Indication: Product used for unknown indication
     Route: 048
  5. OXYCODONE [Concomitant]
     Active Substance: OXYCODONE
     Indication: Product used for unknown indication
     Route: 048
  6. BUSPIRONE [Concomitant]
     Active Substance: BUSPIRONE HYDROCHLORIDE
     Indication: Product used for unknown indication
     Dosage: FREQUENCY : 0.33333333^
     Route: 048
  7. Baclofen PRN [Concomitant]
     Indication: Product used for unknown indication
     Dosage: TIME INTERVAL: 0.33333333 DAYS
     Route: 048
  8. COMPAZINE [Concomitant]
     Active Substance: PROCHLORPERAZINE MALEATE
     Indication: Product used for unknown indication
     Dosage: FREQ: 0.33333333
     Route: 048
     Dates: start: 20220222

REACTIONS (7)
  - Death [Fatal]
  - Mouth ulceration [Unknown]
  - Rash [Unknown]
  - Squamous cell carcinoma of lung [Unknown]
  - Disease progression [Unknown]
  - Pleural effusion [Unknown]
  - Fatigue [Unknown]

NARRATIVE: CASE EVENT DATE: 20171101
